FAERS Safety Report 9445034 (Version 2)
Quarter: 2013Q3

REPORT INFORMATION
  Report Type: Spontaneous
  Country: ES (occurrence: None)
  Receive Date: 20130730
  Receipt Date: 20130906
  Transmission Date: 20140515
  Serious: Yes (Other)
  Sender: FDA-Public Use
  Company Number: 2013037115

PATIENT
  Age: 40 Year
  Sex: Female

DRUGS (2)
  1. BERINERT (CI ESTERASE INHIBITOR, HUMAN) [Suspect]
     Indication: PROPHYLAXIS
  2. BERINERT (CI ESTERASE INHIBITOR, HUMAN) [Suspect]
     Indication: HEREDITARY ANGIOEDEMA

REACTIONS (3)
  - Eosinophilic oesophagitis [None]
  - Dysphagia [None]
  - Choking [None]
